FAERS Safety Report 9439236 (Version 3)
Quarter: 2013Q4

REPORT INFORMATION
  Report Type: Report from Study
  Country: IT (occurrence: IT)
  Receive Date: 20130804
  Receipt Date: 20131208
  Transmission Date: 20140711
  Serious: Yes (Death)
  Sender: FDA-Public Use
  Company Number: IT-ROCHE-1256031

PATIENT
  Age: 55 Year
  Sex: Male
  Weight: 75 kg

DRUGS (16)
  1. OSELTAMIVIR [Suspect]
     Indication: INFLUENZA
     Route: 042
  2. OSELTAMIVIR [Suspect]
     Route: 042
     Dates: start: 20110105, end: 20110115
  3. CEFTRIAXONE [Concomitant]
     Route: 042
     Dates: start: 20110104, end: 20110117
  4. LEVOFLOXACINE [Concomitant]
     Route: 042
     Dates: start: 20110104, end: 20110117
  5. ACICLOVIR [Concomitant]
     Route: 042
     Dates: start: 20110115, end: 20110131
  6. VITAMIN C [Concomitant]
     Route: 042
     Dates: start: 20110104, end: 20110131
  7. METOCLOPRAMIDE [Concomitant]
     Route: 042
     Dates: start: 20110104, end: 20110131
  8. ESOMEPRAZOLE [Concomitant]
     Route: 042
     Dates: start: 20110104, end: 20110131
  9. METILPREDNISOLONE [Concomitant]
     Route: 042
     Dates: start: 20110113, end: 20110120
  10. AMIODARONE [Concomitant]
     Route: 041
     Dates: start: 20110110, end: 20110119
  11. DOPAMINE [Concomitant]
     Route: 041
     Dates: start: 20110113, end: 20110127
  12. HEPARIN [Concomitant]
     Route: 041
     Dates: start: 20110104, end: 20110131
  13. PROPOFOL [Concomitant]
     Route: 041
     Dates: start: 20110115, end: 20110121
  14. FENTANYL [Concomitant]
     Route: 041
     Dates: start: 20110115, end: 20110131
  15. MAGNESIUM SO4 [Concomitant]
     Route: 041
     Dates: start: 20110108, end: 20110131
  16. CISATRACURIUM [Concomitant]
     Route: 041
     Dates: start: 20110106, end: 20110121

REACTIONS (1)
  - Septic shock [Fatal]
